FAERS Safety Report 8782345 (Version 1)
Quarter: 2012Q4

REPORT INFORMATION
  Report Type: 
  Country: US (occurrence: US)
  Receive Date: 20120913
  Receipt Date: 20120913
  Transmission Date: 20130627
  Serious: No
  Sender: FDA-Public Use
  Company Number: US-ASTRAZENECA-2012SE60420

PATIENT
  Age: 61 Year
  Sex: Female

DRUGS (2)
  1. NEXIUM [Suspect]
     Route: 048
  2. IMODIUM [Concomitant]

REACTIONS (4)
  - Chest pain [Unknown]
  - Diarrhoea [Unknown]
  - Nausea [Unknown]
  - Drug dose omission [Unknown]
